FAERS Safety Report 5909884-9 (Version None)
Quarter: 2008Q4

REPORT INFORMATION
  Report Type: 
  Country: None (occurrence: None)
  Receive Date: 20081004
  Receipt Date: 20081004
  Transmission Date: 20090506
  Serious: Yes (Hospitalization)
  Sender: FDA-Public Use
  Company Number: None

PATIENT
  Age: 79 Year

DRUGS (6)
  1. WARFARIN SODIUM [Suspect]
     Indication: AORTIC VALVE REPLACEMENT
     Dosage: 6 MG EVERY DAY PO
     Route: 048
  2. WARFARIN SODIUM [Suspect]
     Indication: CEREBROVASCULAR ACCIDENT
     Dosage: 6 MG EVERY DAY PO
     Route: 048
  3. WARFARIN SODIUM [Suspect]
     Indication: TRANSIENT ISCHAEMIC ATTACK
     Dosage: 6 MG EVERY DAY PO
     Route: 048
  4. ASPIRIN AND DIPYRIDAMOLE [Suspect]
     Indication: CAROTID ARTERIOSCLEROSIS
     Dosage: 1 TAB BID PO
     Route: 048
     Dates: start: 20080808, end: 20080916
  5. ASPIRIN AND DIPYRIDAMOLE [Suspect]
     Indication: CEREBROVASCULAR ACCIDENT
     Dosage: 1 TAB BID PO
     Route: 048
     Dates: start: 20080808, end: 20080916
  6. ASPIRIN AND DIPYRIDAMOLE [Suspect]
     Indication: TRANSIENT ISCHAEMIC ATTACK
     Dosage: 1 TAB BID PO
     Route: 048
     Dates: start: 20080808, end: 20080916

REACTIONS (2)
  - GASTRIC HAEMORRHAGE [None]
  - INTERNATIONAL NORMALISED RATIO DECREASED [None]
